FAERS Safety Report 6746482-1 (Version None)
Quarter: 2010Q2

REPORT INFORMATION
  Report Type: 
  Country: None (occurrence: None)
  Receive Date: 20100528
  Receipt Date: 20091218
  Transmission Date: 20101027
  Serious: No
  Sender: FDA-Public Use
  Company Number: US-ASTRAZENECA-2009SE33277

PATIENT
  Sex: Male

DRUGS (7)
  1. PRILOSEC OTC [Suspect]
     Indication: PAIN
     Route: 048
  2. PRILOSEC OTC [Suspect]
     Indication: GASTROOESOPHAGEAL REFLUX DISEASE
     Route: 048
  3. PRILOSEC OTC [Suspect]
  4. PRILOSEC OTC [Suspect]
  5. ASPIRIN [Concomitant]
     Dosage: UNK DOSE, 1 /DAY
     Route: 048
  6. METOPROLOL [Concomitant]
     Dosage: UNKNOWN
  7. STATINS [Concomitant]
     Dosage: UNKNOWN

REACTIONS (2)
  - DISCOMFORT [None]
  - DYSPEPSIA [None]
